FAERS Safety Report 16551976 (Version 1)
Quarter: 2019Q3

REPORT INFORMATION
  Report Type: Spontaneous
  Country: CN (occurrence: CN)
  Receive Date: 20190710
  Receipt Date: 20190710
  Transmission Date: 20191004
  Serious: Yes (Other)
  Sender: FDA-Public Use
  Company Number: CN-PHARMALEX-2070606

PATIENT

DRUGS (6)
  1. BUPIVACAINE. [Concomitant]
     Active Substance: BUPIVACAINE
  2. CELECOXIB. [Concomitant]
     Active Substance: CELECOXIB
  3. ACETAMINOPHEN. [Concomitant]
     Active Substance: ACETAMINOPHEN
  4. EXPAREL [Suspect]
     Active Substance: BUPIVACAINE
     Indication: ANALGESIC THERAPY
  5. GABAPENTIN. [Concomitant]
     Active Substance: GABAPENTIN
  6. OXYCONTIN [Concomitant]
     Active Substance: OXYCODONE HYDROCHLORIDE

REACTIONS (3)
  - Haematoma [Unknown]
  - Flap necrosis [Unknown]
  - Cellulitis [Unknown]
